FAERS Safety Report 25810753 (Version 2)
Quarter: 2025Q4

REPORT INFORMATION
  Report Type: Spontaneous
  Country: CA (occurrence: CA)
  Receive Date: 20250917
  Receipt Date: 20251105
  Transmission Date: 20260118
  Serious: Yes (Death, Life-Threatening, Hospitalization, Other)
  Sender: AUROBINDO
  Company Number: CA-MLMSERVICE-20250829-PI629272-00201-1

PATIENT
  Age: 52 Year
  Sex: Female

DRUGS (3)
  1. LIDOCAINE [Suspect]
     Active Substance: LIDOCAINE
     Indication: Cervical radiculopathy
     Dosage: TWO LIDOCAINE INJECTION AT LEVEL OF THE C3, 2 CM AWAY FROM MIDLINE WITHIN A 5-MINUTE INTERVAL
     Route: 013
  2. LIDOCAINE [Suspect]
     Active Substance: LIDOCAINE
     Indication: Cervical radiculopathy
  3. METHYLPREDNISOLONE [Suspect]
     Active Substance: METHYLPREDNISOLONE
     Indication: Cervical radiculopathy
     Dosage: 40 MG METHYLPREDNISOLONE IN A 3 ML SYRINGE USING A 26G X 1.5 INCHES NEEDLE
     Route: 013

REACTIONS (4)
  - Cardio-respiratory arrest [Fatal]
  - Hypoxic-ischaemic encephalopathy [Fatal]
  - Injury associated with device [Fatal]
  - Cervical radiculopathy [Fatal]
